FAERS Safety Report 9677004 (Version 2)
Quarter: 2014Q3

REPORT INFORMATION
  Report Type: Spontaneous
  Country: FR (occurrence: FR)
  Receive Date: 20131108
  Receipt Date: 20140709
  Transmission Date: 20150326
  Serious: Yes (Hospitalization)
  Sender: FDA-Public Use
  Company Number: FR-BIOGENIDEC-2013BI106968

PATIENT
  Age: 41 Year
  Sex: Female

DRUGS (6)
  1. LUTERAN [Concomitant]
     Active Substance: CHLORMADINONE ACETATE
     Route: 048
  2. MYSOLINE [Concomitant]
     Active Substance: PRIMIDONE
     Indication: TREMOR
     Route: 048
     Dates: start: 20110421
  3. SOLU-MEDROL [Concomitant]
     Active Substance: METHYLPREDNISOLONE SODIUM SUCCINATE
     Route: 042
  4. LIORESAL [Concomitant]
     Active Substance: BACLOFEN
     Indication: MUSCLE SPASTICITY
     Route: 048
     Dates: start: 20090923
  5. LYRICA [Concomitant]
     Active Substance: PREGABALIN
     Indication: PAIN
     Route: 048
     Dates: start: 20101023
  6. TYSABRI [Suspect]
     Active Substance: NATALIZUMAB
     Indication: MULTIPLE SCLEROSIS
     Route: 042
     Dates: start: 20090223

REACTIONS (2)
  - Cervical dysplasia [Recovered/Resolved with Sequelae]
  - Cervix carcinoma stage III [Recovered/Resolved with Sequelae]

NARRATIVE: CASE EVENT DATE: 201305
